FAERS Safety Report 4431363-9 (Version None)
Quarter: 2004Q3

REPORT INFORMATION
  Report Type: 
  Country: None (occurrence: None)
  Receive Date: 20040820
  Receipt Date: 20040813
  Transmission Date: 20050211
  Serious: Yes (Hospitalization)
  Sender: FDA-Public Use
  Company Number: A-CH2004-06867

PATIENT
  Age: 6 Year
  Sex: Female
  Weight: 17.5 kg

DRUGS (1)
  1. TRACLEER [Suspect]
     Indication: PULMONARY HYPERTENSION
     Dosage: 31.25 MG BID ORAL
     Route: 048
     Dates: start: 20031126, end: 20040418

REACTIONS (6)
  - CONDITION AGGRAVATED [None]
  - MALAISE [None]
  - PULMONARY HYPERTENSION [None]
  - SYNCOPE VASOVAGAL [None]
  - TRICUSPID VALVE INCOMPETENCE [None]
  - VOMITING [None]
